FAERS Safety Report 8644693 (Version 3)
Quarter: 2012Q4

REPORT INFORMATION
  Report Type: 
  Country: GB (occurrence: GB)
  Receive Date: 20120702
  Receipt Date: 20120911
  Transmission Date: 20130627
  Serious: Yes (Life-Threatening, Hospitalization, Other)
  Sender: FDA-Public Use
  Company Number: GB-AMGEN-GBRSP2012039048

PATIENT
  Age: 61 Year
  Sex: Female

DRUGS (5)
  1. ENBREL [Suspect]
     Indication: PSORIASIS
     Dosage: 25 mg, 2x/week
     Route: 058
  2. LANSOPRAZOLE [Concomitant]
     Indication: GASTROOESOPHAGEAL REFLUX DISEASE
     Dosage: 30 mg, 1x/day
     Route: 048
  3. BECLOMETASONE [Concomitant]
     Indication: ASTHMA
     Dosage: 100 ug, 2 puffs, 2x/day
  4. SALBUTAMOL [Concomitant]
     Indication: ASTHMA
     Dosage: 100 ug, 1-2 puffs as needed
  5. ACETYLSALICYLIC ACID [Concomitant]
     Dosage: 75 mg, 1x/day
     Route: 048
     Dates: end: 20120615

REACTIONS (9)
  - Pulmonary embolism [Recovering/Resolving]
  - Asthenia [Recovering/Resolving]
  - Hyperhidrosis [Recovering/Resolving]
  - Nausea [Recovering/Resolving]
  - Tachypnoea [Recovering/Resolving]
  - Productive cough [Recovering/Resolving]
  - Chest discomfort [Recovering/Resolving]
  - Dyspnoea [Recovering/Resolving]
  - Palpitations [Recovering/Resolving]
